FAERS Safety Report 20081092 (Version 5)
Quarter: 2022Q1

REPORT INFORMATION
  Report Type: Spontaneous
  Country: US (occurrence: US)
  Receive Date: 20211117
  Receipt Date: 20220218
  Transmission Date: 20220423
  Serious: Yes (Other)
  Sender: FDA-Public Use
  Company Number: US-BEH-2021138082

PATIENT
  Age: 71 Year
  Sex: Female

DRUGS (20)
  1. HIZENTRA [Suspect]
     Active Substance: HUMAN IMMUNOGLOBULIN G
     Indication: Immunodeficiency common variable
     Dosage: 14 GRAM, QOW
     Route: 058
  2. HIZENTRA [Suspect]
     Active Substance: HUMAN IMMUNOGLOBULIN G
     Indication: Transient ischaemic attack
     Dosage: 14 GRAM, QOW
     Route: 058
  3. HIZENTRA [Suspect]
     Active Substance: HUMAN IMMUNOGLOBULIN G
     Indication: Cerebral infarction
     Dosage: 14 GRAM, QOW
     Route: 058
     Dates: start: 20211126
  4. HIZENTRA [Suspect]
     Active Substance: HUMAN IMMUNOGLOBULIN G
     Dosage: 14 GRAM, QOW
     Route: 058
  5. HIZENTRA [Suspect]
     Active Substance: HUMAN IMMUNOGLOBULIN G
     Dosage: 14 GRAM, QOW
     Route: 058
  6. OXYCODONE HYDROCHLORIDE [Concomitant]
     Active Substance: OXYCODONE HYDROCHLORIDE
  7. ASPIRIN [Concomitant]
     Active Substance: ASPIRIN
  8. BIOTIN [Concomitant]
     Active Substance: BIOTIN
  9. CALCIUM [Concomitant]
     Active Substance: CALCIUM
  10. CEPHALEXIN [Concomitant]
     Active Substance: CEPHALEXIN
  11. CLONAZEPAM [Concomitant]
     Active Substance: CLONAZEPAM
  12. LAMOTRIGINE [Concomitant]
     Active Substance: LAMOTRIGINE
  13. LAMOTRIGINE [Concomitant]
     Active Substance: LAMOTRIGINE
  14. METHENAMINE [Concomitant]
     Active Substance: METHENAMINE
  15. VITAMINS [Concomitant]
     Active Substance: VITAMINS
  16. OMEPRAZOLE [Concomitant]
     Active Substance: OMEPRAZOLE
  17. PREDNISONE [Concomitant]
     Active Substance: PREDNISONE
  18. VITAMIN D3 [Concomitant]
     Active Substance: CHOLECALCIFEROL
  19. XANAX [Concomitant]
     Active Substance: ALPRAZOLAM
  20. TYLENOL [Concomitant]
     Active Substance: ACETAMINOPHEN
     Indication: Premedication

REACTIONS (20)
  - Nasopharyngitis [Unknown]
  - Arthralgia [Recovered/Resolved]
  - Chills [Recovered/Resolved]
  - Pyrexia [Recovered/Resolved]
  - Fatigue [Unknown]
  - No adverse event [Unknown]
  - Off label use [Unknown]
  - Hypersomnia [Recovered/Resolved]
  - Malaise [Recovered/Resolved]
  - Fatigue [Recovered/Resolved]
  - Urine abnormality [Unknown]
  - Chromaturia [Unknown]
  - Urine flow decreased [Unknown]
  - Pollakiuria [Unknown]
  - Renal disorder [Unknown]
  - Peripheral swelling [Unknown]
  - Urinary retention [Unknown]
  - Solar lentigo [Unknown]
  - Urinary hesitation [Not Recovered/Not Resolved]
  - Urinary retention [Not Recovered/Not Resolved]

NARRATIVE: CASE EVENT DATE: 20211126
